FAERS Safety Report 6026514-9 (Version None)
Quarter: 2009Q1

REPORT INFORMATION
  Report Type: 
  Country: None (occurrence: None)
  Receive Date: 20090102
  Receipt Date: 20081224
  Transmission Date: 20090719
  Serious: Yes (Other)
  Sender: FDA-Public Use
  Company Number: US-ROCHE-599156

PATIENT
  Sex: Female
  Weight: 63 kg

DRUGS (8)
  1. NAPROXEN [Suspect]
     Indication: OSTEOARTHRITIS
     Dosage: DOSE REPORTED AS: 2 DOSE FORM EVERY MORNING AND 1 DOSE FORM EVERY EVENING, LONG STANDING, AS NEEDED.
     Route: 048
     Dates: end: 20081028
  2. INDAPAMIDE [Suspect]
     Dosage: OTHER INDICATION: HYPERCALCEMIA.
     Route: 048
     Dates: start: 20060208, end: 20081028
  3. AMILORIDE HYDROCHLORIDE [Suspect]
     Dosage: OTHER INDICATION: HYPERCALCEMIA.
     Route: 048
     Dates: start: 20060208, end: 20081028
  4. IBUPROFEN TABLETS [Suspect]
     Indication: OSTEOARTHRITIS
     Dosage: DOSING AMOUNT REPORTED AS: 2 DOSE FORM IN MORNING AND 1 DOSE FORM IN EVENING, AS NEEDED.
     Route: 048
     Dates: end: 20081028
  5. RECLAST [Suspect]
     Indication: OSTEOPOROSIS
     Dosage: FORM: INFUSION, DOSING AMOUNT REPORTED AS ONCE.
     Route: 042
     Dates: start: 20081020, end: 20081028
  6. DIOVAN [Concomitant]
     Route: 048
     Dates: start: 20060208
  7. LOVASTATIN [Concomitant]
     Route: 048
     Dates: start: 20071102
  8. FOSAMAX [Concomitant]
     Indication: OSTEOPOROSIS
     Route: 048
     Dates: start: 20071110, end: 20081020

REACTIONS (4)
  - BLOOD CREATININE INCREASED [None]
  - GLOMERULAR FILTRATION RATE DECREASED [None]
  - RENAL FAILURE [None]
  - URINARY TRACT INFECTION [None]
